FAERS Safety Report 4700511-5 (Version None)
Quarter: 2005Q2

REPORT INFORMATION
  Report Type: 
  Country: None (occurrence: None)
  Receive Date: 20050627
  Receipt Date: 20050617
  Transmission Date: 20051028
  Serious: Yes (Other)
  Sender: FDA-Public Use
  Company Number: PHFR2005GB02206

PATIENT
  Age: 79 Year
  Sex: Male

DRUGS (3)
  1. CHEMOTHERAPEUTICS,OTHER [Concomitant]
  2. CORTICOSTEROIDS [Concomitant]
  3. ZOMETA [Suspect]
     Indication: MULTIPLE MYELOMA

REACTIONS (1)
  - ASEPTIC NECROSIS BONE [None]
